FAERS Safety Report 5861044-6 (Version None)
Quarter: 2008Q3

REPORT INFORMATION
  Report Type: 
  Country: None (occurrence: None)
  Receive Date: 20080826
  Receipt Date: 20080814
  Transmission Date: 20090109
  Serious: Yes (Other)
  Sender: FDA-Public Use
  Company Number: 029597

PATIENT
  Age: 16 Year
  Sex: Female

DRUGS (1)
  1. CLARAVIS [Suspect]
     Dosage: 30 MG, BID, ORAL
     Route: 048
     Dates: start: 20080426, end: 20080526

REACTIONS (4)
  - ABORTION INDUCED [None]
  - DEVICE FAILURE [None]
  - TREATMENT NONCOMPLIANCE [None]
  - UNINTENDED PREGNANCY [None]
